FAERS Safety Report 17501411 (Version 1)
Quarter: 2020Q1

REPORT INFORMATION
  Report Type: Spontaneous
  Country: NL (occurrence: NL)
  Receive Date: 20200305
  Receipt Date: 20200305
  Transmission Date: 20200409
  Serious: Yes (Other)
  Sender: FDA-Public Use
  Company Number: NL-MYLANLABS-2020M1023617

PATIENT
  Sex: Female
  Weight: 51 kg

DRUGS (4)
  1. IMIPRAMINE [Suspect]
     Active Substance: IMIPRAMINE
     Indication: PRODUCT USED FOR UNKNOWN INDICATION
     Dosage: 20 MILLIGRAM, QD(TABLET, 10 MG (MILLIGRAM), 1 KEER PER DAG, 2)
     Dates: start: 201908, end: 20200107
  2. DEPAKINE CHRONO [Suspect]
     Active Substance: VALPROATE SODIUM
     Indication: PRODUCT USED FOR UNKNOWN INDICATION
     Dosage: 300 MILLIGRAM, BID(TABLET MET GEREGULEERDE AFGIFTE, 300 MG (MILLIGRAM), 2 KEER PER DAG, 1)
     Dates: start: 201910
  3. DEPAKINE CHRONO [Suspect]
     Active Substance: VALPROATE SODIUM
     Indication: BEHAVIOUR DISORDER
     Dosage: 500 MILLIGRAM, BID(TABLET MET GEREGULEERDE AFGIFTE, 500 MG (MILLIGRAM), 2 KEER PER DAG,)
     Dates: start: 2013
  4. PAROXETINE. [Suspect]
     Active Substance: PAROXETINE
     Indication: DEPRESSED MOOD
     Dosage: 30 MILLIGRAM, QD(TABLET, 30 MG (MILLIGRAM), 1 KEER PER DAG, 1)
     Dates: start: 20141225

REACTIONS (1)
  - Dysphagia [Recovering/Resolving]
